FAERS Safety Report 6162743-1 (Version None)
Quarter: 2009Q2

REPORT INFORMATION
  Report Type: 
  Country: None (occurrence: None)
  Receive Date: 20090421
  Receipt Date: 20080423
  Transmission Date: 20091009
  Serious: No
  Sender: FDA-Public Use
  Company Number: US-ASTRAZENECA-2008UW08245

PATIENT
  Age: 41 Year
  Sex: Male
  Weight: 72.6 kg

DRUGS (2)
  1. METOPROLOL SUCCINATE [Suspect]
     Indication: HYPERTENSION
     Route: 048
     Dates: start: 20070101
  2. NORVASC [Concomitant]

REACTIONS (1)
  - GOUT [None]
